FAERS Safety Report 12458529 (Version 1)
Quarter: 2016Q2

REPORT INFORMATION
  Report Type: Spontaneous
  Country: US (occurrence: None)
  Receive Date: 20160610
  Receipt Date: 20160610
  Transmission Date: 20160815
  Serious: Yes (Life-Threatening, Disabling)
  Sender: FDA-Public Use
  Company Number: None

PATIENT
  Age: 32 Year
  Sex: Male
  Weight: 86.18 kg

DRUGS (1)
  1. LEVOFLOXACIN, 500 MG [Suspect]
     Active Substance: LEVOFLOXACIN
     Indication: LOWER RESPIRATORY TRACT INFECTION
     Route: 048
     Dates: start: 20160501, end: 20160510

REACTIONS (21)
  - Nervous system disorder [None]
  - Vitreous floaters [None]
  - Weight decreased [None]
  - Tendon pain [None]
  - Anxiety [None]
  - Photosensitivity reaction [None]
  - Depressed level of consciousness [None]
  - Insomnia [None]
  - Hypoaesthesia [None]
  - Photophobia [None]
  - Heart rate irregular [None]
  - Renal pain [None]
  - Impaired work ability [None]
  - Activities of daily living impaired [None]
  - Alopecia [None]
  - Arthropathy [None]
  - Pain in extremity [None]
  - Hepatic pain [None]
  - Fatigue [None]
  - Depression [None]
  - Disturbance in attention [None]

NARRATIVE: CASE EVENT DATE: 20160510
